FAERS Safety Report 4330835-5 (Version None)
Quarter: 2004Q1

REPORT INFORMATION
  Report Type: 
  Country: None (occurrence: None)
  Receive Date: 20040331
  Receipt Date: 20040318
  Transmission Date: 20041129
  Serious: Yes (Hospitalization)
  Sender: FDA-Public Use
  Company Number: 2004-BP-02176BP

PATIENT
  Age: 78 Year
  Sex: Female

DRUGS (5)
  1. ATROVENT [Suspect]
     Indication: CHRONIC OBSTRUCTIVE AIRWAYS DISEASE
     Dosage: 388 MCG (18 MCG, 4 PUFFS QID), IH
     Route: 055
     Dates: start: 20020101
  2. XANAX [Concomitant]
  3. PRINIVIL [Concomitant]
  4. CLONIDINE (CLO9NIDINE) [Concomitant]
  5. SEREVENT [Concomitant]

REACTIONS (8)
  - ASTHENIA [None]
  - CONCUSSION [None]
  - DIVERTICULITIS INTESTINAL HAEMORRHAGIC [None]
  - DRUG LEVEL INCREASED [None]
  - FALL [None]
  - FATIGUE [None]
  - HEAD INJURY [None]
  - VOMITING [None]
